FAERS Safety Report 23527504 (Version 1)
Quarter: 2024Q1

REPORT INFORMATION
  Report Type: Spontaneous
  Country: US (occurrence: US)
  Receive Date: 20240215
  Receipt Date: 20240215
  Transmission Date: 20240410
  Serious: No
  Sender: FDA-Public Use
  Company Number: US-VERTEX PHARMACEUTICALS-2024-002168

PATIENT
  Sex: Female

DRUGS (1)
  1. TRIKAFTA [Suspect]
     Active Substance: ELEXACAFTOR\IVACAFTOR\TEZACAFTOR
     Indication: Cystic fibrosis
     Dosage: UNK FREQ
     Route: 048

REACTIONS (9)
  - Anxiety [Unknown]
  - Peripheral swelling [Unknown]
  - Apathy [Unknown]
  - Fatigue [Unknown]
  - Frustration tolerance decreased [Unknown]
  - Confusional state [Unknown]
  - Insomnia [Unknown]
  - Malaise [Unknown]
  - General physical health deterioration [Unknown]
